FAERS Safety Report 6509116-7 (Version None)
Quarter: 2009Q4

REPORT INFORMATION
  Report Type: 
  Country: None (occurrence: None)
  Receive Date: 20091221
  Receipt Date: 20091211
  Transmission Date: 20100525
  Serious: Yes (Other)
  Sender: FDA-Public Use
  Company Number: BR-PFIZER INC-2009191818

PATIENT

DRUGS (1)
  1. VIAGRA [Suspect]
     Indication: AMYOTROPHIC LATERAL SCLEROSIS
     Dosage: 3X/DAY

REACTIONS (2)
  - BLOOD PRESSURE SYSTOLIC DECREASED [None]
  - FEELING ABNORMAL [None]
